FAERS Safety Report 12231619 (Version 7)
Quarter: 2017Q1

REPORT INFORMATION
  Report Type: Report from Study
  Country: FR (occurrence: FR)
  Receive Date: 20160401
  Receipt Date: 20170221
  Transmission Date: 20170428
  Serious: Yes (Death, Hospitalization, Disabling, Other)
  Sender: FDA-Public Use
  Company Number: FR-INCYTE CORPORATION-2016IN001815

PATIENT
  Age: 85 Year
  Sex: Female

DRUGS (6)
  1. PREVISCAN [Concomitant]
     Active Substance: FLUINDIONE
     Indication: ATRIAL FIBRILLATION
     Dosage: 0.5 DF, QD
     Route: 048
     Dates: end: 20151005
  2. PURINETHOL [Concomitant]
     Active Substance: MERCAPTOPURINE
     Indication: PRODUCT USED FOR UNKNOWN INDICATION
     Dosage: 150 MG, QD
     Route: 048
     Dates: start: 20151105
  3. PURINETHOL [Concomitant]
     Active Substance: MERCAPTOPURINE
     Dosage: UNK, QD
  4. PURINETHOL [Concomitant]
     Active Substance: MERCAPTOPURINE
     Dosage: UNK, QD
  5. JAKAVI [Suspect]
     Active Substance: RUXOLITINIB
     Indication: MYELOFIBROSIS
     Dosage: 20 MG, QD
     Route: 048
     Dates: start: 20140317
  6. HYDREA [Concomitant]
     Active Substance: HYDROXYUREA
     Indication: PRODUCT USED FOR UNKNOWN INDICATION
     Dosage: UNK
     Route: 048
     Dates: start: 20151015, end: 20151030

REACTIONS (18)
  - Fall [Unknown]
  - Altered state of consciousness [Fatal]
  - Psychomotor retardation [Unknown]
  - Visual impairment [Unknown]
  - Traumatic intracranial haemorrhage [Fatal]
  - Spinal cord haematoma [Unknown]
  - Effusion [Unknown]
  - Escherichia urinary tract infection [Recovered/Resolved]
  - Bicytopenia [Unknown]
  - Ascites [Unknown]
  - Headache [Unknown]
  - Dizziness [Unknown]
  - Leukocytosis [Unknown]
  - Cognitive disorder [Unknown]
  - Vomiting [Unknown]
  - Myelofibrosis [Unknown]
  - International normalised ratio increased [Recovering/Resolving]
  - Apathy [Unknown]

NARRATIVE: CASE EVENT DATE: 20151002
